FAERS Safety Report 13176966 (Version 1)
Quarter: 2017Q1

REPORT INFORMATION
  Report Type: Report from Study
  Country: US (occurrence: US)
  Receive Date: 20170201
  Receipt Date: 20170201
  Transmission Date: 20170428
  Serious: No
  Sender: FDA-Public Use
  Company Number: US-EXELIXIS-CABO-16006777

PATIENT
  Sex: Female

DRUGS (10)
  1. HYDROMORPHONE [Concomitant]
     Active Substance: HYDROMORPHONE
  2. SIMVASTATIN. [Concomitant]
     Active Substance: SIMVASTATIN
  3. MVI [Concomitant]
     Active Substance: VITAMINS
  4. FENTANYL. [Concomitant]
     Active Substance: FENTANYL
  5. COMETRIQ [Suspect]
     Active Substance: CABOZANTINIB S-MALATE
     Indication: BONE CANCER
     Dosage: 60 MG, QD
     Route: 048
     Dates: start: 20160715
  6. LISINOPRIL. [Concomitant]
     Active Substance: LISINOPRIL
  7. ZOFRAN [Concomitant]
     Active Substance: ONDANSETRON HYDROCHLORIDE
  8. XALATAN [Concomitant]
     Active Substance: LATANOPROST
  9. COLACE [Concomitant]
     Active Substance: DOCUSATE SODIUM
  10. MEGACE [Concomitant]
     Active Substance: MEGESTROL ACETATE

REACTIONS (4)
  - Dizziness [Recovered/Resolved]
  - Off label use [Unknown]
  - Hypoacusis [Unknown]
  - Ear discomfort [Unknown]
